FAERS Safety Report 9718745 (Version 1)
Quarter: 2013Q4

REPORT INFORMATION
  Report Type: Not Available
  Country: US (occurrence: US)
  Receive Date: 20131125
  Receipt Date: 20131125
  Transmission Date: 20140711
  Serious: Yes (Other)
  Sender: FDA-Public Use
  Company Number: US-H. LUNDBECK A/S-DKLU1093847

PATIENT
  Age: 13 Year
  Sex: Male

DRUGS (4)
  1. ONFI (ORAL SUSPENSION) [Suspect]
     Indication: ACQUIRED EPILEPTIC APHASIA
     Route: 048
     Dates: start: 20130913
  2. ONFI [Concomitant]
     Indication: ACQUIRED EPILEPTIC APHASIA
     Route: 048
     Dates: start: 20120109
  3. ONFI [Concomitant]
     Route: 048
  4. LAMICTAL [Concomitant]
     Indication: PRODUCT USED FOR UNKNOWN INDICATION

REACTIONS (1)
  - Convulsion [Unknown]
